FAERS Safety Report 10744119 (Version 1)
Quarter: 2015Q1

REPORT INFORMATION
  Report Type: Spontaneous
  Country: GB (occurrence: None)
  Receive Date: 20150126
  Receipt Date: 20150126
  Transmission Date: 20150721
  Serious: Yes (Other)
  Sender: FDA-Public Use
  Company Number: GB-DEXPHARM-20150012

PATIENT
  Age: 33 Year
  Sex: Female

DRUGS (1)
  1. HYDREX PINK [Suspect]
     Active Substance: ALCOHOL\CHLORHEXIDINE GLUCONATE
     Indication: INFECTION PROPHYLAXIS
     Route: 061

REACTIONS (6)
  - Perineal pain [None]
  - Burning sensation [None]
  - Dermatitis contact [None]
  - Maternal exposure during delivery [None]
  - Rash erythematous [None]
  - No reaction on previous exposure to drug [None]
